FAERS Safety Report 7585730-5 (Version None)
Quarter: 2011Q2

REPORT INFORMATION
  Report Type: 
  Country: None (occurrence: None)
  Receive Date: 20110603
  Receipt Date: 20110405
  Transmission Date: 20111010
  Serious: No
  Sender: FDA-Public Use
  Company Number: 201103058

PATIENT
  Age: 68 Year
  Sex: Male

DRUGS (1)
  1. XIAFLEX [Suspect]
     Indication: DUPUYTREN'S CONTRACTURE
     Dosage: 0.58 MG, 1 IN 1 D, INTRALESIONAL
     Route: 026
     Dates: start: 20110322, end: 20110322

REACTIONS (8)
  - PAIN IN EXTREMITY [None]
  - TENDERNESS [None]
  - CONDITION AGGRAVATED [None]
  - ERYTHEMA [None]
  - OEDEMA PERIPHERAL [None]
  - CONTUSION [None]
  - VEIN WALL HYPERTROPHY [None]
  - MUSCULOSKELETAL STIFFNESS [None]
